FAERS Safety Report 9781078 (Version 2)
Quarter: 2014Q1

REPORT INFORMATION
  Report Type: Report from Study
  Country: BR (occurrence: BR)
  Receive Date: 20131224
  Receipt Date: 20140130
  Transmission Date: 20141002
  Serious: Yes (Death)
  Sender: FDA-Public Use
  Company Number: BR-ROCHE-1321465

PATIENT
  Age: 67 Year
  Sex: Female
  Weight: 60.5 kg

DRUGS (5)
  1. PERTUZUMAB [Suspect]
     Indication: BREAST CANCER METASTATIC
     Dosage: LOADING DOSE AS PER PROTOCOL.
     Route: 042
     Dates: start: 20130724, end: 20130724
  2. PERTUZUMAB [Suspect]
     Dosage: MAINTENENCE DOSE AS PER PROTOCOL.?DATE OF LAST DOSE PRIOR TO SUDDEN DEATH: 25/SEP/2013.
     Route: 042
     Dates: start: 20130814, end: 20130925
  3. TRASTUZUMAB [Suspect]
     Indication: BREAST CANCER METASTATIC
     Dosage: LOADING DOSE AS PER PROTOCOL.
     Route: 042
     Dates: start: 20130725, end: 20130725
  4. TRASTUZUMAB [Suspect]
     Dosage: MAINTENENCE DOSE AS PER PROTOCOL.?DATE OF LAST DOSE PRIOR TO SUDDEN DEATH: 25/SEP/2013.
     Route: 042
     Dates: start: 20130815, end: 20130925
  5. VINORELBINE [Suspect]
     Indication: BREAST CANCER METASTATIC
     Dosage: DATE OF LAST DOSE PRIOR TO SUDDEN DEATH: 02/OCT/2013.
     Route: 042
     Dates: start: 20130725, end: 20131002

REACTIONS (1)
  - Sudden death [Fatal]
